FAERS Safety Report 5796503-8 (Version None)
Quarter: 2008Q3

REPORT INFORMATION
  Report Type: 
  Country: None (occurrence: None)
  Receive Date: 20080701
  Receipt Date: 20080624
  Transmission Date: 20090109
  Serious: Yes (Death, Hospitalization)
  Sender: FDA-Public Use
  Company Number: A0735444A

PATIENT
  Age: 70 Year
  Sex: Female
  Weight: 62 kg

DRUGS (2)
  1. SERETIDE [Suspect]
     Indication: CHRONIC OBSTRUCTIVE PULMONARY DISEASE
     Route: 055
     Dates: start: 20071201, end: 20080404
  2. HYDROCHLOROTHIAZIDE [Concomitant]
     Indication: DRUG USE FOR UNKNOWN INDICATION
     Dates: start: 20070401, end: 20080401

REACTIONS (4)
  - ABDOMINAL PAIN [None]
  - CHOLELITHIASIS [None]
  - HYPERTENSION [None]
  - HYPOTENSION [None]
